FAERS Safety Report 23685051 (Version 5)
Quarter: 2024Q2

REPORT INFORMATION
  Report Type: Report from Study
  Country: US (occurrence: US)
  Receive Date: 20240328
  Receipt Date: 20240620
  Transmission Date: 20240716
  Serious: Yes (Other)
  Sender: FDA-Public Use
  Company Number: US-ABBVIE-5695017

PATIENT
  Sex: Male
  Weight: 64.41 kg

DRUGS (2)
  1. RINVOQ [Suspect]
     Active Substance: UPADACITINIB
     Indication: Pruritus
     Dosage: LAST ADMIN DATE: 2024
     Route: 048
     Dates: start: 20240220
  2. RINVOQ [Suspect]
     Active Substance: UPADACITINIB
     Indication: Pruritus
     Route: 048
     Dates: start: 20240321

REACTIONS (3)
  - Spinal stenosis [Unknown]
  - Pain [Unknown]
  - Gait disturbance [Unknown]

NARRATIVE: CASE EVENT DATE: 20240101
